FAERS Safety Report 6955926-1 (Version None)
Quarter: 2010Q3

REPORT INFORMATION
  Report Type: 
  Country: None (occurrence: None)
  Receive Date: 20100826
  Receipt Date: 20100826
  Transmission Date: 20110219
  Serious: No
  Sender: FDA-Public Use
  Company Number: None

PATIENT
  Age: 50 Year
  Sex: Male
  Weight: 122.4712 kg

DRUGS (2)
  1. ALLI [Suspect]
     Indication: WEIGHT CONTROL
     Dates: start: 20100802, end: 20100803
  2. LIPITOR [Concomitant]

REACTIONS (2)
  - ABDOMINAL PAIN LOWER [None]
  - IRRITABLE BOWEL SYNDROME [None]
